FAERS Safety Report 5557141-5 (Version None)
Quarter: 2007Q4

REPORT INFORMATION
  Report Type: 
  Country: None (occurrence: None)
  Receive Date: 20071211
  Receipt Date: 20071211
  Transmission Date: 20080405
  Serious: Yes (Hospitalization)
  Sender: FDA-Public Use
  Company Number: None

PATIENT
  Sex: Male
  Weight: 89.8122 kg

DRUGS (1)
  1. DEPAKOTE ER [Suspect]
     Indication: BIPOLAR I DISORDER
     Dosage: 2000MG BEFORE SLEEP PO
     Route: 048
     Dates: start: 20040101, end: 20071210

REACTIONS (6)
  - CIRCADIAN RHYTHM SLEEP DISORDER [None]
  - HYPERHIDROSIS [None]
  - INSOMNIA [None]
  - MANIA [None]
  - RASH GENERALISED [None]
  - SWELLING [None]
